FAERS Safety Report 5584126-5 (Version None)
Quarter: 2008Q1

REPORT INFORMATION
  Report Type: 
  Country: None (occurrence: None)
  Receive Date: 20080108
  Receipt Date: 20080102
  Transmission Date: 20080703
  Serious: Yes (Hospitalization, Other)
  Sender: FDA-Public Use
  Company Number: BR-ASTRAZENECA-2008UW00251

PATIENT
  Age: 58 Year
  Sex: Male
  Weight: 77 kg

DRUGS (6)
  1. ATENOL [Suspect]
     Indication: HYPERTENSION
     Route: 048
     Dates: start: 20070701, end: 20071201
  2. SELOZOK [Suspect]
     Indication: HYPERTENSION
     Route: 048
     Dates: start: 20071227
  3. CLOPIDOGREL [Concomitant]
     Indication: PLATELET AGGREGATION
     Route: 048
     Dates: start: 20071227
  4. SIMVASTATIN [Concomitant]
     Indication: HYPERCHOLESTEROLAEMIA
     Route: 048
     Dates: start: 20071227
  5. SUSTRATE [Concomitant]
     Indication: VASODILATATION
     Route: 048
     Dates: start: 20071227
  6. ASPIRIN PREVENT [Concomitant]
     Indication: PLATELET AGGREGATION
     Route: 048
     Dates: start: 20071227

REACTIONS (5)
  - BLOOD CHOLESTEROL INCREASED [None]
  - CHEST DISCOMFORT [None]
  - CORONARY ARTERY OCCLUSION [None]
  - FATIGUE [None]
  - INSOMNIA [None]
